FAERS Safety Report 13368995 (Version 1)
Quarter: 2017Q1

REPORT INFORMATION
  Report Type: Spontaneous
  Country: FR (occurrence: FR)
  Receive Date: 20170324
  Receipt Date: 20170324
  Transmission Date: 20170429
  Serious: Yes (Hospitalization)
  Sender: FDA-Public Use
  Company Number: FR-009507513-1703FRA008441

PATIENT
  Age: 24 Year
  Sex: Female

DRUGS (2)
  1. NEXPLANON [Suspect]
     Active Substance: ETONOGESTREL
     Dosage: ONE IMPLANT
     Route: 058
  2. NEXPLANON [Suspect]
     Active Substance: ETONOGESTREL
     Dosage: ONE IMPLANT
     Route: 058
     Dates: start: 201606, end: 201702

REACTIONS (5)
  - Fatigue [Recovered/Resolved]
  - Hypertension [Recovering/Resolving]
  - Irritability [Recovering/Resolving]
  - Tachycardia [Recovering/Resolving]
  - Weight increased [Recovering/Resolving]
